FAERS Safety Report 23629345 (Version 2)
Quarter: 2024Q2

REPORT INFORMATION
  Report Type: Spontaneous
  Country: US (occurrence: US)
  Receive Date: 20240313
  Receipt Date: 20240403
  Transmission Date: 20240716
  Serious: Yes (Hospitalization)
  Sender: FDA-Public Use
  Company Number: US-BIOGEN-2024BI01254757

PATIENT
  Sex: Female

DRUGS (1)
  1. VUMERITY [Suspect]
     Active Substance: DIROXIMEL FUMARATE
     Indication: Multiple sclerosis
     Route: 050
     Dates: start: 202311

REACTIONS (5)
  - Joint space narrowing [Unknown]
  - Dizziness [Unknown]
  - Hunger [Unknown]
  - Multiple sclerosis [Not Recovered/Not Resolved]
  - Rash [Unknown]
